FAERS Safety Report 7592753-9 (Version None)
Quarter: 2011Q3

REPORT INFORMATION
  Report Type: 
  Country: None (occurrence: None)
  Receive Date: 20110706
  Receipt Date: 20110630
  Transmission Date: 20111222
  Serious: Yes (Other)
  Sender: FDA-Public Use
  Company Number: US-PFIZER INC-2011147655

PATIENT
  Sex: Female
  Weight: 68 kg

DRUGS (2)
  1. EFFEXOR XR [Suspect]
     Indication: DEPRESSION
     Dosage: 300 MG, 1X/DAY
     Route: 048
     Dates: start: 20040101, end: 20110401
  2. EFFEXOR XR [Suspect]
     Indication: PAIN

REACTIONS (7)
  - EMOTIONAL DISORDER [None]
  - NASOPHARYNGITIS [None]
  - NEURALGIA [None]
  - SKIN ODOUR ABNORMAL [None]
  - SUICIDAL IDEATION [None]
  - HYPERHIDROSIS [None]
  - WITHDRAWAL SYNDROME [None]
